FAERS Safety Report 15779319 (Version 2)
Quarter: 2019Q1

REPORT INFORMATION
  Report Type: Spontaneous
  Country: US (occurrence: US)
  Receive Date: 20190101
  Receipt Date: 20190104
  Transmission Date: 20190417
  Serious: No
  Sender: FDA-Public Use
  Company Number: US-LUNDBECK-DKLU2058755

PATIENT
  Age: 74 Year
  Sex: Male

DRUGS (2)
  1. NORTHERA [Suspect]
     Active Substance: DROXIDOPA
     Indication: DEMENTIA WITH LEWY BODIES
     Route: 048
     Dates: start: 20160325
  2. NORTHERA [Suspect]
     Active Substance: DROXIDOPA
     Indication: ORTHOSTATIC HYPOTENSION
     Route: 048

REACTIONS (7)
  - Expired product administered [Unknown]
  - Therapeutic response decreased [Unknown]
  - Product use issue [Unknown]
  - Bedridden [Unknown]
  - Hypotension [Unknown]
  - Product dose omission [Unknown]
  - Orthostatic hypotension [Unknown]

NARRATIVE: CASE EVENT DATE: 20181225
